FAERS Safety Report 13719934 (Version 1)
Quarter: 2017Q3

REPORT INFORMATION
  Report Type: Report from Study
  Country: None (occurrence: CO)
  Receive Date: 20170705
  Receipt Date: 20170705
  Transmission Date: 20171127
  Serious: Yes (Hospitalization)
  Sender: FDA-Public Use
  Company Number: CO-ABBVIE-17P-036-2029241-00

PATIENT
  Age: 70 Year
  Sex: Female
  Weight: 80 kg

DRUGS (4)
  1. FUROSEMIDE. [Concomitant]
     Active Substance: FUROSEMIDE
     Indication: PRODUCT USED FOR UNKNOWN INDICATION
  2. ZEMPLAR [Suspect]
     Active Substance: PARICALCITOL
     Indication: HYPERPARATHYROIDISM SECONDARY
     Route: 042
     Dates: start: 20150831, end: 20170131
  3. INSULIN (NON-ABBVIE) [Concomitant]
     Indication: PRODUCT USED FOR UNKNOWN INDICATION
  4. LOSARTAN. [Concomitant]
     Active Substance: LOSARTAN
     Indication: PRODUCT USED FOR UNKNOWN INDICATION

REACTIONS (1)
  - Device related infection [Not Recovered/Not Resolved]

NARRATIVE: CASE EVENT DATE: 20170620
